FAERS Safety Report 12679119 (Version 2)
Quarter: 2016Q3

REPORT INFORMATION
  Report Type: Spontaneous
  Country: GB (occurrence: GB)
  Receive Date: 20160824
  Receipt Date: 20160824
  Transmission Date: 20161109
  Serious: Yes (Death, Hospitalization)
  Sender: FDA-Public Use
  Company Number: GB-SUN PHARMACEUTICAL INDUSTRIES LTD-2015RR-104532

PATIENT
  Age: 51 Year
  Sex: Female

DRUGS (3)
  1. FLUOXETINE [Suspect]
     Active Substance: FLUOXETINE HYDROCHLORIDE
     Indication: ANXIETY
     Dosage: 100.0 MG UNKNOWN
     Route: 065
     Dates: start: 2008
  2. QUETIAPINE. [Suspect]
     Active Substance: QUETIAPINE
     Dosage: UNK
     Route: 048
  3. QUETIAPINE. [Suspect]
     Active Substance: QUETIAPINE
     Indication: PRODUCT USED FOR UNKNOWN INDICATION
     Dosage: 400 MG, BID
     Route: 048

REACTIONS (8)
  - Death [Fatal]
  - Interstitial lung disease [Fatal]
  - Agitation [Fatal]
  - Tremor [Fatal]
  - Drug withdrawal syndrome [Fatal]
  - Pneumonia [Fatal]
  - Overdose [Fatal]
  - Asthma [Fatal]

NARRATIVE: CASE EVENT DATE: 2009
